FAERS Safety Report 4380598-2 (Version None)
Quarter: 2004Q2

REPORT INFORMATION
  Report Type: 
  Country: None (occurrence: None)
  Receive Date: 20040618
  Receipt Date: 20040616
  Transmission Date: 20050107
  Serious: Yes (Other)
  Sender: FDA-Public Use
  Company Number: US-GLAXOSMITHKLINE-A0515009A

PATIENT
  Age: 57 Year
  Sex: Female

DRUGS (8)
  1. WELLBUTRIN XL [Suspect]
     Dosage: 150MG PER DAY
     Route: 048
     Dates: start: 20040528, end: 20040530
  2. ZOCOR [Concomitant]
  3. FOSAMAX [Concomitant]
  4. LOTENSIN [Concomitant]
  5. CELEBREX [Concomitant]
  6. NIFEDIPINE [Concomitant]
  7. FLONASE [Concomitant]
  8. PATANOL [Concomitant]

REACTIONS (5)
  - AGGRESSION [None]
  - ANGER [None]
  - DISORIENTATION [None]
  - NERVOUSNESS [None]
  - PHYSICAL ASSAULT [None]
